FAERS Safety Report 8834514 (Version 1)
Quarter: 2012Q4

REPORT INFORMATION
  Report Type: Spontaneous
  Country: US (occurrence: None)
  Receive Date: 20120927
  Receipt Date: 20120927
  Transmission Date: 20130627
  Serious: Yes (Death)
  Sender: FDA-Public Use
  Company Number: 2011PROUSA01825

PATIENT
  Age: 88 Year
  Sex: Male
  Weight: 78.8 kg

DRUGS (1)
  1. PROVENGE [Suspect]
     Indication: PROSTATE CANCER METASTATIC
     Route: 042
     Dates: start: 20110822, end: 20110822

REACTIONS (3)
  - Device occlusion [None]
  - Thrombosis in device [None]
  - Unresponsive to stimuli [None]
